FAERS Safety Report 5722743-X (Version None)
Quarter: 2008Q2

REPORT INFORMATION
  Report Type: 
  Country: None (occurrence: None)
  Receive Date: 20080425
  Receipt Date: 20080411
  Transmission Date: 20081010
  Serious: Yes (Hospitalization)
  Sender: FDA-Public Use
  Company Number: POMP-1000132

PATIENT
  Age: 10 Month
  Sex: Male

DRUGS (1)
  1. MYOZYME [Suspect]
     Indication: GLYCOGEN STORAGE DISEASE TYPE II
     Dosage: 20 MG/KG, Q2W, INTRAVENOUS
     Route: 042
     Dates: start: 20071128

REACTIONS (4)
  - COLLAPSE OF LUNG [None]
  - GASTROENTERITIS VIRAL [None]
  - PNEUMONIA ASPIRATION [None]
  - RESPIRATORY FAILURE [None]
